FAERS Safety Report 8736638 (Version 2)
Quarter: 2012Q4

REPORT INFORMATION
  Report Type: Spontaneous
  Country: FR (occurrence: None)
  Receive Date: 20120806
  Receipt Date: 20120831
  Transmission Date: 20130627
  Serious: Yes (Other)
  Sender: FDA-Public Use
  Company Number: 2012000192

PATIENT
  Age: 84 Year
  Sex: Male
  Weight: 61 kg

DRUGS (6)
  1. ACEON [Suspect]
     Indication: ANGINA PECTORIS
     Dosage: 5 MG, QD, ORAL
     Route: 048
     Dates: start: 201202, end: 20120515
  2. ACEON [Suspect]
     Indication: HYPERTENSION
     Dosage: 5 MG, QD, ORAL
     Route: 048
     Dates: start: 201202, end: 20120515
  3. KARDEGIC [Concomitant]
  4. SECTRAL [Concomitant]
  5. ACETAMINOPHEN [Concomitant]
  6. CHONDROSULF (CHONDROITIN SULFATE SODIUM) [Concomitant]

REACTIONS (8)
  - Cholestasis [None]
  - Hepatitis [None]
  - Anaemia [None]
  - Inflammation [None]
  - Nausea [None]
  - Hepatocellular injury [None]
  - Cholelithiasis [None]
  - Weight decreased [None]
